FAERS Safety Report 21145337 (Version 1)
Quarter: 2022Q3

REPORT INFORMATION
  Report Type: Report from Study
  Country: ES (occurrence: ES)
  Receive Date: 20220729
  Receipt Date: 20220729
  Transmission Date: 20221027
  Serious: Yes (Hospitalization)
  Sender: FDA-Public Use
  Company Number: None

PATIENT
  Age: 72 Year
  Sex: Female

DRUGS (6)
  1. IBUPROFEN [Suspect]
     Active Substance: IBUPROFEN
     Indication: Product used for unknown indication
     Dosage: (1769A), DURATION-13 DAYS
     Dates: start: 20220514, end: 20220526
  2. TERIPARATIDE [Suspect]
     Active Substance: TERIPARATIDE
     Indication: Osteoporosis
     Dosage: (5070A), UNIT DOSE:20 MCG, FREQUENCY TIME-1 DAY
     Dates: start: 20220519
  3. ENOXAPARIN SODIUM [Suspect]
     Active Substance: ENOXAPARIN SODIUM
     Indication: Prophylaxis
     Dosage: (2482SO), UNIT DOSE: 40 MG, FREQUENCY TIME-1 DAY,
     Dates: start: 20220509
  4. CALCIUM PIDOLATE\CHOLECALCIFEROL [Suspect]
     Active Substance: CALCIUM PIDOLATE\CHOLECALCIFEROL
     Indication: Product used for unknown indication
     Dosage: FORM STRENGTH 600 MG/400 IU, 60 SACHETS, UNIT DOSE: 1 DF, FREQUENCY TIME-1 DAY, DURATION-8 DAYS
     Dates: start: 20220519, end: 20220526
  5. MEROPENEM [Suspect]
     Active Substance: MEROPENEM
     Indication: Antibiotic prophylaxis
     Dosage: (7155A), UNIT DOSE: 2 G, FREQUENCY TIME- 8 HRS, DURATION-11 DAYS
     Dates: start: 20220509, end: 20220519
  6. TEICOPLANIN [Suspect]
     Active Substance: TEICOPLANIN
     Indication: Antibiotic prophylaxis
     Dosage: (2474A), UNIT DOSE: 800 MG, FREQUENCY TIME-1 DAY, DURATION-12 DAYS
     Dates: start: 20220509, end: 20220520

REACTIONS (3)
  - Drug reaction with eosinophilia and systemic symptoms [Recovering/Resolving]
  - Hypertransaminasaemia [Recovered/Resolved]
  - Pyrexia [Recovered/Resolved]

NARRATIVE: CASE EVENT DATE: 20220519
